FAERS Safety Report 9958336 (Version 1)
Quarter: 2014Q1

REPORT INFORMATION
  Report Type: Report from Study
  Country: US (occurrence: US)
  Receive Date: 20140305
  Receipt Date: 20140305
  Transmission Date: 20141002
  Serious: Yes (Other)
  Sender: FDA-Public Use
  Company Number: US-ROCHE-1341040

PATIENT
  Sex: Female

DRUGS (4)
  1. LUCENTIS [Suspect]
     Indication: AGE-RELATED MACULAR DEGENERATION
     Route: 050
  2. LUCENTIS [Suspect]
     Indication: AGE-RELATED MACULAR DEGENERATION
  3. AVASTIN [Suspect]
     Indication: AGE-RELATED MACULAR DEGENERATION
     Route: 065
  4. ASPIRIN [Concomitant]
     Route: 065

REACTIONS (12)
  - Eye pruritus [Unknown]
  - Vitreous floaters [Unknown]
  - Vision blurred [Unknown]
  - Metamorphopsia [Unknown]
  - Photopsia [Unknown]
  - Lacrimation increased [Unknown]
  - Photophobia [Unknown]
  - Headache [Unknown]
  - Visual impairment [Unknown]
  - Visual field defect [Unknown]
  - Visual acuity reduced [Recovered/Resolved]
  - Off label use [Unknown]
